FAERS Safety Report 23015233 (Version 1)
Quarter: 2023Q4

REPORT INFORMATION
  Report Type: Spontaneous
  Country: SK (occurrence: None)
  Receive Date: 20231002
  Receipt Date: 20231002
  Transmission Date: 20240110
  Serious: Yes (Death)
  Sender: FDA-Public Use
  Company Number: SK-ROCHE-3431918

PATIENT
  Age: 54 Year
  Sex: Male

DRUGS (2)
  1. ROZLYTREK [Suspect]
     Active Substance: ENTRECTINIB
     Indication: Lung adenocarcinoma
     Dosage: 90 X 200 MG?DOSING: 600 MG/DAY
     Route: 065
  2. CRIZOTINIB [Concomitant]
     Active Substance: CRIZOTINIB

REACTIONS (3)
  - Disease progression [Fatal]
  - Condition aggravated [Unknown]
  - Off label use [Unknown]
